FAERS Safety Report 15426928 (Version 1)
Quarter: 2018Q3

REPORT INFORMATION
  Report Type: Spontaneous
  Country: US (occurrence: US)
  Receive Date: 20180925
  Receipt Date: 20180925
  Transmission Date: 20181010
  Serious: No
  Sender: FDA-Public Use
  Company Number: US-INDIVIOR LIMITED-INDV-108597-2018

PATIENT
  Age: 30 Year
  Sex: Female

DRUGS (4)
  1. NICOTINE. [Concomitant]
     Active Substance: NICOTINE
     Indication: PRODUCT USED FOR UNKNOWN INDICATION
     Dosage: 1/2 PACK PER DAY
     Route: 065
  2. PRENATAL VITAMINS                  /07499601/ [Concomitant]
     Active Substance: VITAMINS
     Indication: PRODUCT USED FOR UNKNOWN INDICATION
     Dosage: UNK
     Route: 065
  3. SUBOXONE [Suspect]
     Active Substance: BUPRENORPHINE HYDROCHLORIDE\NALOXONE HYDROCHLORIDE
     Indication: DRUG DEPENDENCE
     Dosage: 8 MG, TID
     Route: 060
  4. SUBOXONE [Suspect]
     Active Substance: BUPRENORPHINE HYDROCHLORIDE\NALOXONE HYDROCHLORIDE
     Dosage: CUTTING THE FILMS IN HALF AND DOSING BID (HALF IN MORNING AND HALF AT NIGHT)
     Route: 060
     Dates: end: 20180122

REACTIONS (6)
  - Product use issue [Recovered/Resolved]
  - Maternal exposure during pregnancy [Recovered/Resolved]
  - Wrong technique in product usage process [Recovered/Resolved]
  - Intentional product misuse [Recovered/Resolved]
  - Therapy cessation [Recovered/Resolved]
  - Intentional underdose [Recovered/Resolved]

NARRATIVE: CASE EVENT DATE: 20180122
